FAERS Safety Report 20840286 (Version 4)
Quarter: 2022Q2

REPORT INFORMATION
  Report Type: Spontaneous
  Country: GR (occurrence: GR)
  Receive Date: 20220517
  Receipt Date: 20220629
  Transmission Date: 20220721
  Serious: Yes (Other)
  Sender: FDA-Public Use
  Company Number: GR-ORGANON-O2204GRC001186

PATIENT
  Sex: Female

DRUGS (6)
  1. REMERON [Suspect]
     Active Substance: MIRTAZAPINE
     Indication: Depression
     Dosage: AT NIGHT
     Route: 048
     Dates: start: 20220317, end: 20220424
  2. REMERON [Suspect]
     Active Substance: MIRTAZAPINE
     Dosage: 1/2 TABLET PER DAY
     Route: 048
     Dates: start: 202203, end: 20220317
  3. REMERON [Suspect]
     Active Substance: MIRTAZAPINE
     Dosage: UNK
     Route: 048
     Dates: start: 202206
  4. CIPRALEX [Suspect]
     Active Substance: ESCITALOPRAM OXALATE
     Indication: Depression
     Dosage: IN THE MORNING
     Dates: start: 20220317, end: 20220330
  5. CIPRALEX [Suspect]
     Active Substance: ESCITALOPRAM OXALATE
     Dosage: 1/2 TABLET PER DAY
     Dates: start: 202203
  6. CORTISONE [Concomitant]
     Active Substance: CORTISONE
     Dosage: UNK

REACTIONS (14)
  - Skin burning sensation [Recovering/Resolving]
  - Tongue discomfort [Recovering/Resolving]
  - Burning sensation [Recovering/Resolving]
  - Oral discomfort [Recovering/Resolving]
  - Blood pressure increased [Recovering/Resolving]
  - Chest pain [Recovering/Resolving]
  - Anxiety [Recovering/Resolving]
  - Dry mouth [Recovering/Resolving]
  - Paraesthesia [Recovering/Resolving]
  - Pain of skin [Recovering/Resolving]
  - Photosensitivity reaction [Recovering/Resolving]
  - Euphoric mood [Recovering/Resolving]
  - Wrong technique in product usage process [Unknown]
  - Somatic symptom disorder [Recovering/Resolving]

NARRATIVE: CASE EVENT DATE: 20220101
